FAERS Safety Report 4312284-9 (Version None)
Quarter: 2004Q1

REPORT INFORMATION
  Report Type: 
  Country: None (occurrence: None)
  Receive Date: 20040305
  Receipt Date: 20040225
  Transmission Date: 20041129
  Serious: Yes (Death)
  Sender: FDA-Public Use
  Company Number: US-GLAXOSMITHKLINE-A0500179A

PATIENT
  Age: 72 Year
  Sex: Male

DRUGS (1)
  1. PAXIL [Suspect]
     Indication: DEPRESSION
     Dosage: 2700MG SEE DOSAGE TEXT
     Route: 048
     Dates: start: 20030101

REACTIONS (1)
  - OVERDOSE [None]
